FAERS Safety Report 11395895 (Version 1)
Quarter: 2015Q3

REPORT INFORMATION
  Report Type: Spontaneous
  Country: US (occurrence: US)
  Receive Date: 20150819
  Receipt Date: 20150819
  Transmission Date: 20151125
  Serious: No
  Sender: FDA-Public Use
  Company Number: US-JNJFOC-20150706353

PATIENT
  Sex: Female

DRUGS (1)
  1. INVEGA TRINZA [Suspect]
     Active Substance: PALIPERIDONE PALMITATE
     Indication: PRODUCT USED FOR UNKNOWN INDICATION
     Dates: start: 20150701

REACTIONS (6)
  - Depression [Unknown]
  - Needle issue [Unknown]
  - Medication error [Unknown]
  - Procedural complication [Unknown]
  - Wrong technique in product usage process [Unknown]
  - Akathisia [Unknown]

NARRATIVE: CASE EVENT DATE: 20150701
